FAERS Safety Report 17491559 (Version 1)
Quarter: 2020Q1

REPORT INFORMATION
  Report Type: Spontaneous
  Country: IT (occurrence: IT)
  Receive Date: 20200304
  Receipt Date: 20200304
  Transmission Date: 20200409
  Serious: Yes (Life-Threatening, Hospitalization)
  Sender: FDA-Public Use
  Company Number: IT-ALS-000002

PATIENT
  Age: 27 Year
  Sex: Female

DRUGS (1)
  1. QUETIAPINE. [Suspect]
     Active Substance: QUETIAPINE
     Indication: PRODUCT USED FOR UNKNOWN INDICATION
     Dosage: 50 EXTENDED-RELEASE 300 MG TABLETS
     Route: 048

REACTIONS (9)
  - Sinus tachycardia [Recovered/Resolved]
  - Drug level increased [Recovered/Resolved]
  - Seizure [Unknown]
  - Agitation [Recovered/Resolved]
  - Confusional state [Not Recovered/Not Resolved]
  - Drug level above therapeutic [Recovered/Resolved]
  - Neurological decompensation [Unknown]
  - Intentional overdose [Recovered/Resolved]
  - Lactic acidosis [Recovered/Resolved]
